FAERS Safety Report 10197045 (Version 1)
Quarter: 2014Q2

REPORT INFORMATION
  Report Type: Spontaneous
  Country: US (occurrence: US)
  Receive Date: 20140527
  Receipt Date: 20140527
  Transmission Date: 20141212
  Serious: Yes (Other)
  Sender: FDA-Public Use
  Company Number: US-SA-2014SA064986

PATIENT
  Sex: Female

DRUGS (2)
  1. LANTUS SOLOSTAR [Suspect]
     Indication: DIABETES MELLITUS
     Dosage: DOSE:79 UNIT(S)
     Route: 065
  2. SOLOSTAR [Concomitant]

REACTIONS (3)
  - Cardiac failure congestive [Unknown]
  - Eye disorder [Unknown]
  - Off label use [Unknown]
